FAERS Safety Report 11575254 (Version 2)
Quarter: 2015Q4

REPORT INFORMATION
  Report Type: Spontaneous
  Country: US (occurrence: US)
  Receive Date: 20150916
  Receipt Date: 20151027
  Transmission Date: 20160304
  Serious: No
  Sender: FDA-Public Use
  Company Number: US-ELI_LILLY_AND_COMPANY-US200911005396

PATIENT
  Age: 83 Year
  Sex: Female

DRUGS (1)
  1. FORTEO [Suspect]
     Active Substance: TERIPARATIDE
     Dosage: 20 UG, DAILY (1/D)
     Dates: start: 20091118, end: 20091118

REACTIONS (7)
  - Vertigo [Unknown]
  - Aphasia [Unknown]
  - Vomiting [Unknown]
  - Hyponatraemia [Unknown]
  - Dizziness [Recovered/Resolved]
  - Nausea [Unknown]
  - Eye disorder [Unknown]

NARRATIVE: CASE EVENT DATE: 20091118
